FAERS Safety Report 8081917-6 (Version None)
Quarter: 2012Q1

REPORT INFORMATION
  Report Type: 
  Country: None (occurrence: None)
  Receive Date: 20120130
  Receipt Date: 20110314
  Transmission Date: 20120608
  Serious: No
  Sender: FDA-Public Use
  Company Number: US-ABBOTT-11P-163-0711537-00

PATIENT
  Sex: Male
  Weight: 118.04 kg

DRUGS (1)
  1. LUPRON DEPOT [Suspect]
     Indication: PROSTATE CANCER
     Route: 030
     Dates: start: 20101201

REACTIONS (8)
  - GAIT DISTURBANCE [None]
  - MUSCLE SPASMS [None]
  - HOT FLUSH [None]
  - INJECTION SITE INDURATION [None]
  - INJECTION SITE WARMTH [None]
  - INCORRECT ROUTE OF DRUG ADMINISTRATION [None]
  - PAIN IN EXTREMITY [None]
  - SCIATIC NERVE INJURY [None]
